FAERS Safety Report 10175757 (Version 1)
Quarter: 2014Q2

REPORT INFORMATION
  Report Type: Report from Study
  Country: BE (occurrence: BE)
  Receive Date: 20140516
  Receipt Date: 20140516
  Transmission Date: 20141212
  Serious: Yes (Hospitalization)
  Sender: FDA-Public Use
  Company Number: BE-ROCHE-1398127

PATIENT
  Age: 61 Year
  Sex: Female

DRUGS (3)
  1. RIBAVIRIN [Suspect]
     Indication: HEPATITIS C
     Route: 048
     Dates: start: 20131122
  2. PEG-INTERFERON ALFA 2A [Suspect]
     Indication: HEPATITIS C
     Route: 065
     Dates: start: 20131122
  3. VICTRELIS [Suspect]
     Indication: HEPATITIS C
     Dosage: DOSE INTERRUPTED
     Route: 048
     Dates: start: 20131122

REACTIONS (2)
  - Anaemia [Unknown]
  - General physical health deterioration [Unknown]
